FAERS Safety Report 6653136-9 (Version None)
Quarter: 2010Q1

REPORT INFORMATION
  Report Type: 
  Country: None (occurrence: None)
  Receive Date: 20100326
  Receipt Date: 20100323
  Transmission Date: 20100710
  Serious: Yes (Death, Hospitalization)
  Sender: FDA-Public Use
  Company Number: PHEH2009US18908

PATIENT
  Sex: Male

DRUGS (4)
  1. EXJADE [Suspect]
     Dosage: 2000, DAILY
     Route: 048
  2. EXJADE [Suspect]
     Dosage: UNK
  3. CHEMOTHERAPEUTICS NOS [Concomitant]
  4. PROCRIT                            /00909301/ [Concomitant]
     Indication: ANAEMIA
     Dosage: 40 U Q WK
     Route: 058

REACTIONS (5)
  - ABDOMINAL PAIN [None]
  - ASTHENIA [None]
  - COMPLICATIONS OF BONE MARROW TRANSPLANT [None]
  - DISEASE RECURRENCE [None]
  - PYREXIA [None]
